FAERS Safety Report 4942603-1 (Version None)
Quarter: 2006Q1

REPORT INFORMATION
  Report Type: 
  Country: None (occurrence: None)
  Receive Date: 20060310
  Receipt Date: 20060228
  Transmission Date: 20060701
  Serious: Yes (Hospitalization, Other)
  Sender: FDA-Public Use
  Company Number: 2006-00754

PATIENT
  Age: 41 Year
  Sex: Male

DRUGS (2)
  1. ANDRODERM [Suspect]
     Indication: BLOOD TESTOSTERONE DECREASED
     Dosage: 1 PATCH Q 24 HRS OR Q 48 HRS, TRANSDERMAL
     Route: 062
     Dates: start: 20030101
  2. ANDRODERM [Suspect]
     Indication: MUSCLE MASS
     Dosage: 1 PATCH Q 24 HRS OR Q 48 HRS, TRANSDERMAL
     Route: 062
     Dates: start: 20030101

REACTIONS (8)
  - AGGRESSION [None]
  - ALCOHOLISM [None]
  - ANGER [None]
  - BIPOLAR I DISORDER [None]
  - DRUG ABUSER [None]
  - LEGAL PROBLEM [None]
  - PHYSICAL ABUSE [None]
  - THINKING ABNORMAL [None]
